FAERS Safety Report 6248882-5 (Version None)
Quarter: 2009Q2

REPORT INFORMATION
  Report Type: 
  Country: None (occurrence: None)
  Receive Date: 20090629
  Receipt Date: 20090616
  Transmission Date: 20091009
  Serious: Yes (Other)
  Sender: FDA-Public Use
  Company Number: AU-PFIZER INC-2009217315

PATIENT
  Age: 55 Year

DRUGS (5)
  1. CHAMPIX [Suspect]
     Indication: SMOKING CESSATION THERAPY
     Dosage: 0.5 MG, 1X/DAY
     Route: 048
     Dates: start: 20090115, end: 20090122
  2. KARVEA [Concomitant]
     Indication: HYPERTENSION
     Dosage: UNK
     Route: 048
  3. SOMAC [Concomitant]
     Indication: GASTROOESOPHAGEAL REFLUX DISEASE
     Dosage: UNK
     Route: 048
  4. TEMAZE [Concomitant]
     Indication: INSOMNIA
     Dosage: UNK
     Route: 048
  5. VIAGRA [Concomitant]
     Indication: ERECTILE DYSFUNCTION
     Dosage: UNK
     Route: 048

REACTIONS (3)
  - DYSPHEMIA [None]
  - FEELING DRUNK [None]
  - LOSS OF CONSCIOUSNESS [None]
